FAERS Safety Report 7810312-7 (Version None)
Quarter: 2011Q4

REPORT INFORMATION
  Report Type: 
  Country: None (occurrence: None)
  Receive Date: 20111012
  Receipt Date: 20111010
  Transmission Date: 20120403
  Serious: Yes (Other)
  Sender: FDA-Public Use
  Company Number: US-AMGEN-USASP2011052216

PATIENT
  Age: 60 Year
  Sex: Female

DRUGS (4)
  1. ENBREL [Suspect]
     Indication: MYASTHENIA GRAVIS
  2. ENBREL [Suspect]
     Indication: RHEUMATOID ARTHRITIS
     Dosage: 50 MG, QWK
     Dates: start: 20110701
  3. ENBREL [Suspect]
     Indication: SLEEP APNOEA SYNDROME
  4. ENBREL [Suspect]
     Indication: NARCOLEPSY

REACTIONS (4)
  - HYPOTENSION [None]
  - OXYGEN SATURATION DECREASED [None]
  - PROCEDURAL PAIN [None]
  - RHINALGIA [None]
